FAERS Safety Report 8205176-6 (Version None)
Quarter: 2012Q1

REPORT INFORMATION
  Report Type: 
  Country: None (occurrence: None)
  Receive Date: 20120313
  Receipt Date: 20120228
  Transmission Date: 20120608
  Serious: Yes (Other)
  Sender: FDA-Public Use
  Company Number: BR-ROCHE-1044366

PATIENT
  Sex: Female
  Weight: 68 kg

DRUGS (10)
  1. LIMBITROL [Concomitant]
  2. METOPROLOL SUCCINATE [Concomitant]
  3. ALDACTONE [Concomitant]
  4. VASOPRIL (BRAZIL) [Concomitant]
  5. TRAMADOL HCL [Concomitant]
  6. LASIX [Concomitant]
  7. LEVOTHYROXINE SODIUM [Concomitant]
  8. MABTHERA [Suspect]
     Indication: RHEUMATOID ARTHRITIS
     Route: 042
     Dates: start: 20100101, end: 20110714
  9. AMLODIPINE BESYLATE [Concomitant]
  10. ASPIRIN [Concomitant]

REACTIONS (7)
  - RENAL FAILURE [None]
  - PRURITUS [None]
  - SKIN BURNING SENSATION [None]
  - URINARY TRACT INFECTION [None]
  - NEPHROPATHY [None]
  - DERMATITIS ALLERGIC [None]
  - DIABETES MELLITUS [None]
